FAERS Safety Report 25753597 (Version 2)
Quarter: 2025Q3

REPORT INFORMATION
  Report Type: Spontaneous
  Country: US (occurrence: US)
  Receive Date: 20250903
  Receipt Date: 20250903
  Transmission Date: 20251020
  Serious: No
  Sender: PFIZER
  Company Number: US-PFIZER INC-202500172334

PATIENT
  Age: 65 Year
  Sex: Female
  Weight: 54.88 kg

DRUGS (1)
  1. PREMPRO [Suspect]
     Active Substance: ESTROGENS, CONJUGATED\MEDROXYPROGESTERONE ACETATE
     Indication: Hormone replacement therapy
     Dosage: 1 DF, 1X/DAY (AT NIGHT, BEFORE BED)
     Dates: start: 2025

REACTIONS (5)
  - Alopecia [Not Recovered/Not Resolved]
  - Breast tenderness [Not Recovered/Not Resolved]
  - Skin fragility [Not Recovered/Not Resolved]
  - Mood altered [Not Recovered/Not Resolved]
  - Off label use [Unknown]
